FAERS Safety Report 6853587-3 (Version None)
Quarter: 2010Q3

REPORT INFORMATION
  Report Type: 
  Country: None (occurrence: None)
  Receive Date: 20100717
  Receipt Date: 20080519
  Transmission Date: 20110219
  Serious: No
  Sender: FDA-Public Use
  Company Number: US-PFIZER INC-2007105875

PATIENT
  Sex: Female
  Weight: 64.86 kg

DRUGS (8)
  1. CHANTIX [Suspect]
     Indication: SMOKING CESSATION THERAPY
     Route: 048
     Dates: start: 20071113
  2. SPIRIVA [Concomitant]
  3. ADVAIR DISKUS 100/50 [Concomitant]
  4. PROAIR HFA [Concomitant]
  5. ALBUTEROL [Concomitant]
  6. FLEXERIL [Concomitant]
  7. NEURONTIN [Concomitant]
  8. VICODIN [Concomitant]

REACTIONS (8)
  - ABNORMAL DREAMS [None]
  - CONSTIPATION [None]
  - EMPHYSEMA [None]
  - HYPOAESTHESIA [None]
  - MUSCLE SPASMS [None]
  - NERVE COMPRESSION [None]
  - RASH [None]
  - WEIGHT INCREASED [None]
